FAERS Safety Report 10023705 (Version 1)
Quarter: 2014Q1

REPORT INFORMATION
  Report Type: Spontaneous
  Country: IT (occurrence: IT)
  Receive Date: 20140320
  Receipt Date: 20140320
  Transmission Date: 20141002
  Serious: Yes (Death, Other)
  Sender: FDA-Public Use
  Company Number: IT-BRISTOL-MYERS SQUIBB COMPANY-20470183

PATIENT
  Age: 38 Year
  Sex: Male

DRUGS (4)
  1. ABILIFY TABS 15 MG [Suspect]
     Indication: OBSESSIVE-COMPULSIVE DISORDER
     Dosage: 30MG:20NOV13,04DEC13:22.5MG
     Dates: start: 20131112
  2. ABILIFY TABS 15 MG [Suspect]
     Indication: PERSECUTORY DELUSION
     Dosage: 30MG:20NOV13,04DEC13:22.5MG
     Dates: start: 20131112
  3. ABILIFY TABS 15 MG [Suspect]
     Indication: PSYCHOTIC DISORDER
     Dosage: 30MG:20NOV13,04DEC13:22.5MG
     Dates: start: 20131112
  4. DELORAZEPAM [Suspect]
     Indication: ANXIETY
     Dates: start: 20131204

REACTIONS (4)
  - Completed suicide [Fatal]
  - Drug abuse [Unknown]
  - Off label use [Unknown]
  - Wrong technique in drug usage process [Unknown]
